FAERS Safety Report 8036085-3 (Version None)
Quarter: 2012Q1

REPORT INFORMATION
  Report Type: 
  Country: None (occurrence: None)
  Receive Date: 20120106
  Receipt Date: 20111227
  Transmission Date: 20120608
  Serious: Yes (Hospitalization)
  Sender: FDA-Public Use
  Company Number: 127250-1

PATIENT
  Age: 66 Year
  Sex: Male
  Weight: 97 kg

DRUGS (1)
  1. LEUCOVORIN CALCIUM [Suspect]
     Indication: COLORECTAL CANCER METASTATIC
     Dosage: 400 MG/M2 DAY 1 EVERY 14 DAYS IV
     Route: 042
     Dates: start: 20110704, end: 20111024

REACTIONS (13)
  - VASOGENIC CEREBRAL OEDEMA [None]
  - INTRACRANIAL PRESSURE INCREASED [None]
  - METASTASES TO CENTRAL NERVOUS SYSTEM [None]
  - HAEMOGLOBIN DECREASED [None]
  - GAIT DISTURBANCE [None]
  - BLOOD CHOLESTEROL INCREASED [None]
  - FALL [None]
  - URINARY INCONTINENCE [None]
  - BLOOD GLUCOSE INCREASED [None]
  - HYDROCEPHALUS [None]
  - INTRACRANIAL TUMOUR HAEMORRHAGE [None]
  - DIZZINESS [None]
  - GENERAL PHYSICAL HEALTH DETERIORATION [None]
